FAERS Safety Report 12402990 (Version 1)
Quarter: 2016Q2

REPORT INFORMATION
  Report Type: Spontaneous
  Country: FR (occurrence: FR)
  Receive Date: 20160525
  Receipt Date: 20160525
  Transmission Date: 20160815
  Serious: Yes (Hospitalization, Other)
  Sender: FDA-Public Use
  Company Number: FR-BRISTOL-MYERS SQUIBB COMPANY-BMS-2016-038713

PATIENT
  Age: 84 Year
  Sex: Female

DRUGS (2)
  1. COUMADINE [Suspect]
     Active Substance: WARFARIN SODIUM
     Indication: ATRIAL FIBRILLATION
     Dosage: 1 DF, QD
     Route: 048
  2. PAROXETIN                          /00830801/ [Suspect]
     Active Substance: PAROXETINE HYDROCHLORIDE
     Indication: DEPRESSION
     Dosage: 20 MG, QD
     Route: 048

REACTIONS (6)
  - Chest wall haematoma [Recovered/Resolved]
  - Transfusion [Unknown]
  - Haemothorax [Recovered/Resolved]
  - Anaemia [Recovered/Resolved]
  - Surgery [Unknown]
  - Fall [Unknown]

NARRATIVE: CASE EVENT DATE: 20151208
